FAERS Safety Report 4471917-7 (Version None)
Quarter: 2004Q4

REPORT INFORMATION
  Report Type: 
  Country: None (occurrence: None)
  Receive Date: 20041007
  Receipt Date: 20040924
  Transmission Date: 20050328
  Serious: Yes (Life-Threatening)
  Sender: FDA-Public Use
  Company Number: PK-2004-032555

PATIENT
  Age: 57 Year
  Sex: Male
  Weight: 77 kg

DRUGS (6)
  1. IOPROMIDE (IOPROMIDE)INJECTION [Suspect]
     Indication: ANGIOGRAM
     Dosage: 60 ML, 1 DOSE, INTRA-ARTERIAL
     Route: 013
     Dates: start: 20040922, end: 20040922
  2. METOPROLOL TARTRATE [Concomitant]
  3. LISINOPRIL [Concomitant]
  4. ATORVASTATIN (ATORVASTATIN) [Concomitant]
  5. CLOPIDOGREL (CLOPIDOGREL) [Concomitant]
  6. ASPIRIN [Concomitant]

REACTIONS (5)
  - BRONCHOSPASM [None]
  - CHILLS [None]
  - CONTRAST MEDIA REACTION [None]
  - SHOCK [None]
  - TACHYCARDIA [None]
